FAERS Safety Report 5521393-8 (Version None)
Quarter: 2007Q4

REPORT INFORMATION
  Report Type: 
  Country: None (occurrence: None)
  Receive Date: 20071119
  Receipt Date: 20071109
  Transmission Date: 20080405
  Serious: Yes (Other)
  Sender: FDA-Public Use
  Company Number: JP-MERCK-0711USA03084

PATIENT
  Age: 81 Year
  Sex: Female

DRUGS (6)
  1. PEPCID [Suspect]
     Route: 048
     Dates: end: 20071101
  2. ASPIRIN [Concomitant]
     Route: 065
  3. YOHLACTONE [Concomitant]
     Route: 048
  4. TENORMIN [Concomitant]
     Route: 065
  5. PHENYTOIN [Concomitant]
     Route: 048
  6. MAGNESIUM OXIDE [Concomitant]
     Route: 048

REACTIONS (2)
  - RHABDOMYOLYSIS [None]
  - TOXIC EPIDERMAL NECROLYSIS [None]
